FAERS Safety Report 25508214 (Version 4)
Quarter: 2025Q3

REPORT INFORMATION
  Report Type: Spontaneous
  Country: CA (occurrence: CA)
  Receive Date: 20250703
  Receipt Date: 20250929
  Transmission Date: 20251021
  Serious: Yes (Other)
  Sender: CELLTRION
  Company Number: CA-CELLTRION INC.-2025CA017107

PATIENT

DRUGS (11)
  1. INFLIXIMAB [Suspect]
     Active Substance: INFLIXIMAB
     Indication: Crohn^s disease
     Dosage: 400 MG EVERY 4 WEEKS
     Route: 042
     Dates: start: 20250528
  2. INFLIXIMAB [Suspect]
     Active Substance: INFLIXIMAB
     Dosage: 400 MG EVERY 4 WEEKS
     Route: 042
     Dates: start: 20250528
  3. INFLIXIMAB [Suspect]
     Active Substance: INFLIXIMAB
     Dosage: 400 MG EVERY 4 WEEKS
     Route: 042
     Dates: start: 20250724
  4. INFLIXIMAB [Suspect]
     Active Substance: INFLIXIMAB
     Dosage: 400 MG EVERY 4 WEEKS
     Route: 042
     Dates: start: 20250528
  5. INFLIXIMAB [Suspect]
     Active Substance: INFLIXIMAB
     Dosage: 400 MG EVERY 4 WEEKS
     Route: 042
     Dates: start: 20250528
  6. INFLIXIMAB [Suspect]
     Active Substance: INFLIXIMAB
     Dates: start: 20250821
  7. INFLIXIMAB [Suspect]
     Active Substance: INFLIXIMAB
     Dates: start: 20250920
  8. ATOMOXETINE [Concomitant]
     Active Substance: ATOMOXETINE
     Indication: Product used for unknown indication
     Route: 065
  9. LAMOTRIGINE [Concomitant]
     Active Substance: LAMOTRIGINE
     Indication: Product used for unknown indication
     Route: 065
  10. METHOTREXATE [Concomitant]
     Active Substance: METHOTREXATE
     Indication: Product used for unknown indication
     Route: 065
  11. MODAFINIL [Concomitant]
     Active Substance: MODAFINIL
     Indication: Product used for unknown indication
     Route: 065

REACTIONS (7)
  - Crohn^s disease [Unknown]
  - Aphthous ulcer [Unknown]
  - Anal fissure [Unknown]
  - Arthralgia [Unknown]
  - Off label use [Unknown]
  - Overdose [Unknown]
  - Inappropriate schedule of product administration [Unknown]
